FAERS Safety Report 8087254-8 (Version None)
Quarter: 2012Q1

REPORT INFORMATION
  Report Type: 
  Country: None (occurrence: None)
  Receive Date: 20120128
  Receipt Date: 20110513
  Transmission Date: 20120608
  Serious: No
  Sender: FDA-Public Use
  Company Number: US-ABBOTT-11P-163-0725802-00

PATIENT
  Age: 27 Year
  Sex: Female

DRUGS (4)
  1. LIALDA [Concomitant]
     Indication: CROHN'S DISEASE
     Dosage: FOUR TABLETS EVERY DAY
  2. ACETAMINOPHEN [Concomitant]
     Indication: HEADACHE
     Dosage: AS NEEDED
  3. HUMIRA [Suspect]
     Indication: CROHN'S DISEASE
     Dates: start: 20110416
  4. ENTOCORT EC [Concomitant]
     Indication: CROHN'S DISEASE
     Dosage: THREE TABLETS DAILY

REACTIONS (1)
  - HEADACHE [None]
